FAERS Safety Report 7555263-0 (Version None)
Quarter: 2011Q2

REPORT INFORMATION
  Report Type: 
  Country: None (occurrence: None)
  Receive Date: 20110617
  Receipt Date: 20110419
  Transmission Date: 20111010
  Serious: No
  Sender: FDA-Public Use
  Company Number: US-MYLANLABS-2011S1008219

PATIENT
  Sex: Female

DRUGS (4)
  1. TACROLIMUS [Suspect]
     Route: 048
  2. TACROLIMUS [Suspect]
     Indication: STEM CELL TRANSPLANT
     Route: 048
  3. TACROLIMUS [Suspect]
     Route: 048
  4. TACROLIMUS [Suspect]
     Route: 048

REACTIONS (2)
  - INCORRECT DOSE ADMINISTERED [None]
  - CHROMATURIA [None]
